FAERS Safety Report 14271983 (Version 1)
Quarter: 2017Q4

REPORT INFORMATION
  Report Type: Spontaneous
  Country: US (occurrence: None)
  Receive Date: 20171211
  Receipt Date: 20171211
  Transmission Date: 20180321
  Serious: No
  Sender: FDA-Public Use
  Company Number: None

PATIENT
  Age: 67 Year
  Sex: Male
  Weight: 119.2 kg

DRUGS (1)
  1. HYDROCHLOROTHIAZIDE. [Suspect]
     Active Substance: HYDROCHLOROTHIAZIDE
     Indication: HYPERTENSION
     Dosage: AM
     Route: 048
     Dates: start: 20160708, end: 20170719

REACTIONS (13)
  - Scab [None]
  - Urticaria [None]
  - Purpura [None]
  - Wound [None]
  - Blood blister [None]
  - Secretion discharge [None]
  - Skin lesion [None]
  - Blister [None]
  - Infection [None]
  - Discomfort [None]
  - Rash [None]
  - Oedema [None]
  - Hypersensitivity vasculitis [None]

NARRATIVE: CASE EVENT DATE: 20170615
